FAERS Safety Report 5532493-0 (Version None)
Quarter: 2007Q4

REPORT INFORMATION
  Report Type: 
  Country: None (occurrence: None)
  Receive Date: 20071203
  Receipt Date: 20071123
  Transmission Date: 20080405
  Serious: Yes (Hospitalization)
  Sender: FDA-Public Use
  Company Number: FR-GILEAD-2007-0013614

PATIENT
  Age: 61 Year
  Sex: Female

DRUGS (8)
  1. TRUVADA [Suspect]
     Indication: HIV INFECTION
     Route: 048
     Dates: start: 20060411
  2. TELZIR [Concomitant]
     Indication: HIV INFECTION
     Route: 048
  3. NORVIR [Concomitant]
     Indication: HIV INFECTION
     Route: 048
  4. STABLON [Concomitant]
     Route: 048
  5. LIORESAL [Concomitant]
     Route: 048
  6. DEPAKINE CHRONO [Concomitant]
     Route: 048
  7. OXYBUTYNINE [Concomitant]
  8. OGAST [Concomitant]
     Route: 048

REACTIONS (10)
  - ALBUMINURIA [None]
  - BONE FISSURE [None]
  - BONE PAIN [None]
  - HAEMATURIA [None]
  - HYPOPHOSPHATAEMIA [None]
  - OEDEMA PERIPHERAL [None]
  - PROTEINURIA [None]
  - RENAL TUBULAR DISORDER [None]
  - URINARY TRACT INFECTION [None]
  - VITAMIN D DECREASED [None]
